FAERS Safety Report 23520299 (Version 1)
Quarter: 2024Q1

REPORT INFORMATION
  Report Type: Spontaneous
  Country: US (occurrence: US)
  Receive Date: 20240214
  Receipt Date: 20240214
  Transmission Date: 20240410
  Serious: Yes (Death)
  Sender: FDA-Public Use
  Company Number: US-MALLINCKRODT-MNK202400975

PATIENT

DRUGS (1)
  1. NITRIC OXIDE [Suspect]
     Active Substance: NITRIC OXIDE
     Indication: Product used for unknown indication
     Dosage: UNKNOWN
     Dates: start: 20231204, end: 20231204

REACTIONS (2)
  - Condition aggravated [Fatal]
  - Product use issue [Unknown]

NARRATIVE: CASE EVENT DATE: 20231204
